FAERS Safety Report 7023540-8 (Version None)
Quarter: 2010Q3

REPORT INFORMATION
  Report Type: 
  Country: None (occurrence: None)
  Receive Date: 20100930
  Receipt Date: 20100930
  Transmission Date: 20110219
  Serious: Yes (Life-Threatening, Hospitalization, Disabling)
  Sender: FDA-Public Use
  Company Number: None

PATIENT
  Sex: Male
  Weight: 73.4827 kg

DRUGS (1)
  1. MUCINEX DM [Suspect]
     Indication: DRUG ABUSE
     Dosage: 1 OR 2 TABLETS 12 HOUR

REACTIONS (4)
  - DRUG ABUSE [None]
  - EUPHORIC MOOD [None]
  - HALLUCINATION [None]
  - INTENTIONAL OVERDOSE [None]
